FAERS Safety Report 23608437 (Version 1)
Quarter: 2024Q1

REPORT INFORMATION
  Report Type: Spontaneous
  Country: DE (occurrence: DE)
  Receive Date: 20240307
  Receipt Date: 20240307
  Transmission Date: 20240409
  Serious: Yes (Other)
  Sender: FDA-Public Use
  Company Number: DE-BIOGEN-2024BI01253717

PATIENT
  Sex: Female
  Weight: 2.29 kg

DRUGS (3)
  1. TYSABRI [Suspect]
     Active Substance: NATALIZUMAB
     Indication: Multiple sclerosis
     Dosage: 300 MG/D (EVERY 6-8 WEEKS)/ BEFORE PREGNANCY EVERY 4 WEEKS, IN PREGNANCY REDUCED TO EVERY 6-8 WEEKS
     Route: 050
     Dates: start: 20220727, end: 20230307
  2. BOOSTRIX POLIO [Concomitant]
     Active Substance: DIPHTHERIA AND TETANUS TOXOIDS AND ACELLULAR PERTUSSIS ADSORBED AND INACTIVATED POLIOVIRUS VACCINE
     Indication: Immunisation
     Route: 050
  3. Folsaure (NOS) [Concomitant]
     Indication: Prophylaxis of neural tube defect
     Route: 050
     Dates: start: 20220825, end: 20230408

REACTIONS (3)
  - Leukopenia neonatal [Recovered/Resolved]
  - Anaemia neonatal [Recovered/Resolved]
  - Foetal exposure during pregnancy [Unknown]

NARRATIVE: CASE EVENT DATE: 20230401
